FAERS Safety Report 6779128-7 (Version None)
Quarter: 2010Q2

REPORT INFORMATION
  Report Type: 
  Country: None (occurrence: None)
  Receive Date: 20100618
  Receipt Date: 20100614
  Transmission Date: 20101027
  Serious: Yes (Other)
  Sender: FDA-Public Use
  Company Number: US-BRISTOL-MYERS SQUIBB COMPANY-15149131

PATIENT
  Age: 61 Year
  Sex: Male

DRUGS (2)
  1. COUMADIN [Suspect]
     Indication: STENT PLACEMENT
     Dates: start: 19980101
  2. PLAVIX [Suspect]
     Indication: STENT PLACEMENT
     Dosage: FILM COATED TAB
     Route: 048
     Dates: start: 19980101, end: 20100501

REACTIONS (1)
  - HERNIA [None]
